FAERS Safety Report 8623559-7 (Version None)
Quarter: 2012Q3

REPORT INFORMATION
  Report Type: 
  Country: None (occurrence: None)
  Receive Date: 20120824
  Receipt Date: 20120824
  Transmission Date: 20120928
  Serious: Yes (Hospitalization)
  Sender: FDA-Public Use
  Company Number: None

PATIENT
  Age: 73 Year
  Sex: Female
  Weight: 62.2789 kg

DRUGS (2)
  1. BORTEZOMIB [Suspect]
     Indication: NON-HODGKIN'S LYMPHOMA
     Dosage: 2.7 MG, D1,8,15,28 OF 35D, IV DRIP
     Route: 041
     Dates: start: 20120505, end: 20120816
  2. TEMSIROLIMUS [Suspect]
     Indication: NON-HODGKIN'S LYMPHOMA
     Dosage: 25 MG, D1,8,15,22, OF 35D, IV DRIP
     Route: 041
     Dates: start: 20120505, end: 20120816

REACTIONS (5)
  - DECREASED APPETITE [None]
  - VOMITING [None]
  - NAUSEA [None]
  - DEHYDRATION [None]
  - DIARRHOEA [None]
